FAERS Safety Report 4666234-6 (Version None)
Quarter: 2005Q2

REPORT INFORMATION
  Report Type: 
  Country: None (occurrence: None)
  Receive Date: 20050518
  Receipt Date: 20050504
  Transmission Date: 20051028
  Serious: Yes (Hospitalization)
  Sender: FDA-Public Use
  Company Number: 05-0059PO

PATIENT
  Age: 24 Year
  Sex: Female

DRUGS (3)
  1. PONTAL (MEFENAMIC ACID) TABLET [Suspect]
     Indication: TOOTH EXTRACTION
     Dosage: ONCE, ORAL
     Route: 048
     Dates: start: 20050424, end: 20050424
  2. KEFRAL (CEFACLOR) CAPSULE [Suspect]
     Indication: TOOTH EXTRACTION
     Dosage: ONCE,ORAL
     Route: 048
     Dates: start: 20050424, end: 20050424
  3. ORA (LIDOCAINE HYDROCHLORIDE/EPINEPHRINE BITARTRATE) [Suspect]
     Indication: TOOTH EXTRACTION
     Dosage: INJECTION, SOLN
     Dates: start: 20050424, end: 20050424

REACTIONS (5)
  - ANAPHYLACTIC REACTION [None]
  - DEPRESSED LEVEL OF CONSCIOUSNESS [None]
  - DYSPNOEA [None]
  - POST PROCEDURAL COMPLICATION [None]
  - SWELLING FACE [None]
